FAERS Safety Report 16934576 (Version 1)
Quarter: 2019Q4

REPORT INFORMATION
  Report Type: Spontaneous
  Country: US (occurrence: US)
  Receive Date: 20191018
  Receipt Date: 20191018
  Transmission Date: 20200122
  Serious: Yes (Other)
  Sender: FDA-Public Use
  Company Number: NVSC2019US006721

PATIENT

DRUGS (4)
  1. TRAMETINIB [Suspect]
     Active Substance: TRAMETINIB
     Indication: NEOPLASM
     Dosage: UNK, 1 TO 2 MG DAILY FOR PHASE ONE AND 2 MG FOR PHASE TWO EVERY DAY
     Route: 048
  2. TRAMETINIB [Suspect]
     Active Substance: TRAMETINIB
     Indication: THYROID CANCER
  3. PAZOPANIB [Concomitant]
     Active Substance: PAZOPANIB
     Indication: THYROID CANCER
  4. PAZOPANIB [Concomitant]
     Active Substance: PAZOPANIB
     Indication: NEOPLASM
     Dosage: UNK, 400 TO  800 MG IN PHASE ONE AND 800 MG IN PHASE TWO
     Route: 048

REACTIONS (1)
  - Glaucoma [Unknown]
